FAERS Safety Report 22815811 (Version 4)
Quarter: 2023Q4

REPORT INFORMATION
  Report Type: Spontaneous
  Country: US (occurrence: US)
  Receive Date: 20230811
  Receipt Date: 20231012
  Transmission Date: 20240110
  Serious: Yes (Other)
  Sender: FDA-Public Use
  Company Number: US-PFIZER INC-PV202300137169

PATIENT
  Age: 46 Year
  Sex: Female
  Weight: 81.65 kg

DRUGS (9)
  1. PREMARIN [Suspect]
     Active Substance: ESTROGENS, CONJUGATED
     Indication: Hormone replacement therapy
     Dosage: 0.625 MG, 1X/DAY
     Dates: start: 2017
  2. PREMARIN [Suspect]
     Active Substance: ESTROGENS, CONJUGATED
     Indication: Hormone replacement therapy
     Dosage: UNK
     Dates: start: 2017
  3. ZERODOL [ACECLOFENAC] [Concomitant]
     Indication: Cystitis interstitial
     Dosage: 1 TO 4 PER DAY DEPENDING ON HOW MUCH TROUBLE THE BLADDER IS HAVING
  4. LORATADINE [Concomitant]
     Active Substance: LORATADINE
     Indication: Mast cell activation syndrome
     Dosage: 40 MG TWICE A DAY,1 TO 2 A DAY DEPENDING ON THE DAY
  5. ZITROL [Concomitant]
     Indication: Mast cell activation syndrome
     Dosage: GENERALLY ONCE A DAY DEPENDING, SOMETIMES TWICE A DAY
  6. HYDROXYZINE [Concomitant]
     Active Substance: HYDROXYZINE HYDROCHLORIDE
     Indication: Cystitis interstitial
     Dosage: GENERALLY ONCE A DAY DEPENDING, SOMETIMES TWICE A DAY
  7. SORBITOL [Concomitant]
     Active Substance: SORBITOL
     Dosage: UNK
  8. SORBITOL [Concomitant]
     Active Substance: SORBITOL
     Dosage: UNK
  9. MONTELUKAST [Concomitant]
     Active Substance: MONTELUKAST SODIUM
     Indication: Mast cell activation syndrome
     Dosage: 1X/DAY

REACTIONS (3)
  - Nephrolithiasis [Unknown]
  - Irritability [Unknown]
  - Malaise [Unknown]
